FAERS Safety Report 4645481-3 (Version None)
Quarter: 2005Q2

REPORT INFORMATION
  Report Type: 
  Country: None (occurrence: None)
  Receive Date: 20050331
  Receipt Date: 20050201
  Transmission Date: 20051028
  Serious: No
  Sender: FDA-Public Use
  Company Number: 05P-163-0288998-00

PATIENT
  Age: 77 Year
  Sex: Female

DRUGS (12)
  1. HUMIRA [Suspect]
     Indication: RHEUMATOID ARTHRITIS
     Dosage: 40 MG, 1 IN 1 WK, SUBCUTANEOUS
     Route: 058
     Dates: start: 20040101, end: 20050101
  2. SPIRONOLACTONE [Concomitant]
  3. FUROSEMIDE [Concomitant]
  4. METHOTREXATE [Concomitant]
  5. RANITIDINE [Concomitant]
  6. DEXTROPROPOXYPHENE [Concomitant]
  7. POTASSIUM CHLORIDE [Concomitant]
  8. LISINOPRIL [Concomitant]
  9. ESTROGENS CONJUGATED [Concomitant]
  10. FOLIC ACID [Concomitant]
  11. PREDNISONE TAB [Concomitant]
  12. NITROTAB [Concomitant]

REACTIONS (4)
  - BLOOD ALBUMIN DECREASED [None]
  - INFECTION [None]
  - OEDEMA PERIPHERAL [None]
  - SKIN LACERATION [None]
